FAERS Safety Report 4542780-0 (Version None)
Quarter: 2004Q4

REPORT INFORMATION
  Report Type: 
  Country: None (occurrence: None)
  Receive Date: 20041231
  Receipt Date: 20001110
  Transmission Date: 20050328
  Serious: Yes (Hospitalization, Other)
  Sender: FDA-Public Use
  Company Number: 200022074US

PATIENT
  Sex: Female
  Weight: 65.5 kg

DRUGS (8)
  1. ARAVA [Suspect]
     Indication: RHEUMATOID ARTHRITIS
     Route: 048
     Dates: start: 19990111, end: 20000926
  2. METHOTREXATE [Concomitant]
     Dosage: DOSE: 2.5 TABS: SIX TABS
     Dates: end: 20001129
  3. LEUCOVORIN [Concomitant]
  4. FELDENE [Concomitant]
     Indication: RASH
  5. CALCIUM CARBONATE [Concomitant]
  6. TYLENOL W/ CODEINE NO. 3 [Concomitant]
     Indication: ARTHRALGIA
     Dosage: DOSE: ONE TO TWO Q6H
  7. FLOVENT [Concomitant]
     Indication: BRONCHOSPASM
     Dosage: DOSE: 2 PUFFS
  8. IRON SULFATETHIAMIN COMPOUND TAB [Concomitant]

REACTIONS (14)
  - ABDOMINAL PAIN [None]
  - ATRIAL FLUTTER [None]
  - BLOOD ALKALINE PHOSPHATASE INCREASED [None]
  - CARDIAC FAILURE CONGESTIVE [None]
  - CARDIOMYOPATHY [None]
  - DEEP VEIN THROMBOSIS [None]
  - EJECTION FRACTION [None]
  - HEPATOMEGALY [None]
  - HYPERTENSION [None]
  - LUNG INFILTRATION [None]
  - PLEURAL EFFUSION [None]
  - PNEUMONIA [None]
  - PULMONARY EMBOLISM [None]
  - PYREXIA [None]
